FAERS Safety Report 15768326 (Version 2)
Quarter: 2018Q4

REPORT INFORMATION
  Report Type: Spontaneous
  Country: US (occurrence: US)
  Receive Date: 20181227
  Receipt Date: 20181227
  Transmission Date: 20190205
  Serious: Yes (Other)
  Sender: FDA-Public Use
  Company Number: PHEH2018US054326

PATIENT

DRUGS (33)
  1. AMIKACIN. [Suspect]
     Active Substance: AMIKACIN
     Indication: BLOOD DISORDER
  2. TIGECYCLINE. [Suspect]
     Active Substance: TIGECYCLINE
     Indication: MYCOBACTERIUM ABSCESSUS INFECTION
     Dosage: UNK
     Route: 065
  3. CEFOXITIN [Suspect]
     Active Substance: CEFOXITIN SODIUM
     Indication: BLOOD DISORDER
  4. MOXIFLOXACIN. [Suspect]
     Active Substance: MOXIFLOXACIN
     Indication: OSTEOMYELITIS
  5. TIGECYCLINE. [Suspect]
     Active Substance: TIGECYCLINE
     Indication: BLOOD DISORDER
  6. CLARITHROMYCIN. [Suspect]
     Active Substance: CLARITHROMYCIN
     Indication: MYCOBACTERIUM ABSCESSUS INFECTION
     Dosage: UNK
     Route: 065
  7. IMIPENEM [Suspect]
     Active Substance: IMIPENEM
     Indication: MYCOBACTERIUM ABSCESSUS INFECTION
     Dosage: UNK
     Route: 065
  8. MOXIFLOXACIN. [Suspect]
     Active Substance: MOXIFLOXACIN
     Indication: BACTERAEMIA
  9. DOXYCYCLINE. [Suspect]
     Active Substance: DOXYCYCLINE
     Indication: OSTEOMYELITIS
  10. CLOFAZIMINE [Suspect]
     Active Substance: CLOFAZIMINE
     Indication: BACTERAEMIA
  11. AMIKACIN. [Suspect]
     Active Substance: AMIKACIN
     Indication: MYCOBACTERIUM ABSCESSUS INFECTION
     Dosage: UNK
     Route: 065
  12. TIGECYCLINE. [Suspect]
     Active Substance: TIGECYCLINE
     Indication: OSTEOMYELITIS
  13. CEFOXITIN [Suspect]
     Active Substance: CEFOXITIN SODIUM
     Indication: OSTEOMYELITIS
  14. CIPROFLOXACIN. [Suspect]
     Active Substance: CIPROFLOXACIN
     Indication: BACTERAEMIA
  15. MOXIFLOXACIN. [Suspect]
     Active Substance: MOXIFLOXACIN
     Indication: MYCOBACTERIUM ABSCESSUS INFECTION
     Dosage: UNK
     Route: 065
  16. CLARITHROMYCIN. [Suspect]
     Active Substance: CLARITHROMYCIN
     Indication: OSTEOMYELITIS
  17. DOXYCYCLINE. [Suspect]
     Active Substance: DOXYCYCLINE
     Indication: MYCOBACTERIUM ABSCESSUS INFECTION
     Dosage: UNK
     Route: 065
  18. LINEZOLID. [Suspect]
     Active Substance: LINEZOLID
     Indication: MYCOBACTERIUM ABSCESSUS INFECTION
     Dosage: UNK
     Route: 065
  19. LINEZOLID. [Suspect]
     Active Substance: LINEZOLID
     Indication: OSTEOMYELITIS
  20. AMIKACIN. [Suspect]
     Active Substance: AMIKACIN
     Indication: OSTEOMYELITIS
  21. CEFOXITIN [Suspect]
     Active Substance: CEFOXITIN SODIUM
     Indication: MYCOBACTERIUM ABSCESSUS INFECTION
     Dosage: UNK
     Route: 065
  22. CIPROFLOXACIN. [Suspect]
     Active Substance: CIPROFLOXACIN
     Indication: OSTEOMYELITIS
  23. MINOCYCLINE [Suspect]
     Active Substance: MINOCYCLINE\MINOCYCLINE HYDROCHLORIDE
     Indication: MYCOBACTERIUM ABSCESSUS INFECTION
     Dosage: UNK
     Route: 065
  24. LINEZOLID. [Suspect]
     Active Substance: LINEZOLID
     Indication: BACTERAEMIA
  25. IMIPENEM [Suspect]
     Active Substance: IMIPENEM
     Indication: BLOOD DISORDER
  26. CLOFAZIMINE [Suspect]
     Active Substance: CLOFAZIMINE
     Indication: MYCOBACTERIUM ABSCESSUS INFECTION
     Dosage: 200 MG, QD 118 DOSES
     Route: 065
  27. CLOFAZIMINE [Suspect]
     Active Substance: CLOFAZIMINE
     Indication: OSTEOMYELITIS
  28. CLARITHROMYCIN. [Suspect]
     Active Substance: CLARITHROMYCIN
     Indication: BACTERAEMIA
  29. DOXYCYCLINE. [Suspect]
     Active Substance: DOXYCYCLINE
     Indication: BACTERAEMIA
  30. MINOCYCLINE [Suspect]
     Active Substance: MINOCYCLINE\MINOCYCLINE HYDROCHLORIDE
     Indication: OSTEOMYELITIS
  31. IMIPENEM [Suspect]
     Active Substance: IMIPENEM
     Indication: OSTEOMYELITIS
  32. CIPROFLOXACIN. [Suspect]
     Active Substance: CIPROFLOXACIN
     Indication: MYCOBACTERIUM ABSCESSUS INFECTION
     Dosage: UNK
     Route: 065
  33. MINOCYCLINE [Suspect]
     Active Substance: MINOCYCLINE\MINOCYCLINE HYDROCHLORIDE
     Indication: BACTERAEMIA

REACTIONS (5)
  - Gait disturbance [Unknown]
  - Drug intolerance [Unknown]
  - Ototoxicity [Unknown]
  - Renal failure [Unknown]
  - Postoperative thoracic procedure complication [Unknown]
